FAERS Safety Report 24229172 (Version 1)
Quarter: 2024Q3

REPORT INFORMATION
  Report Type: Spontaneous
  Country: US (occurrence: None)
  Receive Date: 20240819
  Receipt Date: 20240819
  Transmission Date: 20241016
  Serious: Yes (Other)
  Sender: Public
  Company Number: None

PATIENT
  Age: 56 Year
  Sex: Female
  Weight: 72 kg

DRUGS (8)
  1. ZEPBOUND [Suspect]
     Active Substance: TIRZEPATIDE
     Indication: Weight decreased
     Dosage: OTHER QUANTITY : 1 INJECTION(S);?OTHER FREQUENCY : WEEKLY;?OTHER ROUTE : INJECTION IN ABDOMEN;?
     Route: 050
     Dates: start: 20240615
  2. ESTRADIOL [Concomitant]
     Active Substance: ESTRADIOL
  3. PROGESTERONE [Concomitant]
     Active Substance: PROGESTERONE
  4. DIETARY SUPPLEMENT\HERBALS\MILK THISTLE [Concomitant]
     Active Substance: MILK THISTLE
  5. HERBALS\WITHANIA SOMNIFERA ROOT [Concomitant]
     Active Substance: HERBALS\WITHANIA SOMNIFERA ROOT
  6. CHLOROPHYLL [Concomitant]
  7. COLLAGEN [Concomitant]
     Active Substance: COLLAGEN
  8. CALCIUM [Concomitant]
     Active Substance: CALCIUM

REACTIONS (2)
  - Hypoaesthesia [None]
  - Hypoaesthesia [None]

NARRATIVE: CASE EVENT DATE: 20240615
